FAERS Safety Report 24792865 (Version 1)
Quarter: 2024Q4

REPORT INFORMATION
  Report Type: Spontaneous
  Country: GB (occurrence: GB)
  Receive Date: 20241231
  Receipt Date: 20241231
  Transmission Date: 20250114
  Serious: Yes (Other)
  Sender: AUROBINDO
  Company Number: GB-MHRA-TPP43693094C4556377YC1734348145032

PATIENT
  Age: 62 Year
  Sex: Female
  Weight: 118 kg

DRUGS (14)
  1. PERINDOPRIL [Suspect]
     Active Substance: PERINDOPRIL
     Indication: Ill-defined disorder
     Dosage: 2 MILLIGRAM, ONCE A DAY
     Route: 065
     Dates: start: 20241207
  2. ATORVASTATIN [Concomitant]
     Active Substance: ATORVASTATIN
     Indication: Ill-defined disorder
     Dosage: UNK, 1 IN THE EVENING
     Route: 065
     Dates: start: 20241207
  3. CHOLECALCIFEROL [Concomitant]
     Active Substance: CHOLECALCIFEROL
     Indication: Ill-defined disorder
     Dosage: UNK, 1 A WEEK FOR 6 WEEKS
     Route: 065
     Dates: start: 20241207
  4. CIPROFLOXACIN [Concomitant]
     Active Substance: CIPROFLOXACIN
     Indication: Ill-defined disorder
     Dosage: UNK, TWO TIMES A DAY
     Route: 065
     Dates: start: 20230403, end: 20241216
  5. PREDNISOLONE [Concomitant]
     Active Substance: PREDNISOLONE
     Indication: Ill-defined disorder
     Dosage: 8 DOSAGE FORM, ONCE A DAY FOR 5 DAYS
     Route: 065
     Dates: start: 20241216
  6. FLUOXETINE [Concomitant]
     Active Substance: FLUOXETINE HYDROCHLORIDE
     Indication: Ill-defined disorder
     Dosage: UNK, TAKE TWO DAILY
     Route: 065
     Dates: start: 20231011
  7. METFORMIN [Concomitant]
     Active Substance: METFORMIN HYDROCHLORIDE
     Indication: Ill-defined disorder
     Dosage: UNK, TWO TIMES A DAY
     Route: 065
     Dates: start: 20231011
  8. OMEPRAZOLE [Concomitant]
     Active Substance: OMEPRAZOLE
     Indication: Ill-defined disorder
     Dosage: UNK, TAKE ONE DAILY
     Route: 065
     Dates: start: 20231011
  9. THEOPHYLLINE ANHYDROUS [Concomitant]
     Active Substance: THEOPHYLLINE ANHYDROUS
     Indication: Ill-defined disorder
     Dosage: UNK, ONE TO BE TAKEN TWICE A DAY
     Route: 065
     Dates: start: 20231023
  10. GABAPENTIN [Concomitant]
     Active Substance: GABAPENTIN
     Indication: Ill-defined disorder
     Dosage: UNK, ONE TO BE TAKEN THREE TIMES A DAY
     Route: 065
     Dates: start: 20231122
  11. VENTOLIN [Concomitant]
     Active Substance: ALBUTEROL SULFATE
     Indication: Ill-defined disorder
     Dosage: UNK, TAKE ONE OR TWO PUFFS UP TO FOUR TIMES A DAY AS...
     Route: 065
     Dates: start: 20231209
  12. TRAMADOL [Concomitant]
     Active Substance: TRAMADOL
     Indication: Ill-defined disorder
     Dosage: UNK, ONE OR TWO TO BE TAKEN EVERY FOUR HOURS WHEN NE...
     Route: 065
     Dates: start: 20240130
  13. BECLOMETHASONE DIPROPIONATE\FORMOTEROL FUMARATE\GLYCOPYRROLATE [Concomitant]
     Active Substance: BECLOMETHASONE DIPROPIONATE\FORMOTEROL FUMARATE\GLYCOPYRROLATE
     Indication: Ill-defined disorder
     Dosage: UNK, TWO PUFFS TWICE DAILY
     Route: 065
     Dates: start: 20240207
  14. PROCHLORPERAZINE [Concomitant]
     Active Substance: PROCHLORPERAZINE
     Indication: Ill-defined disorder
     Dosage: 1 DOSAGE FORM, 3 TIMES A DAY
     Route: 065
     Dates: start: 20240905

REACTIONS (2)
  - Bronchospasm [Unknown]
  - Asthma [Recovered/Resolved]

NARRATIVE: CASE EVENT DATE: 20241216
